FAERS Safety Report 9207057 (Version 2)
Quarter: 2013Q2

REPORT INFORMATION
  Report Type: Spontaneous
  Country: ZA (occurrence: ZA)
  Receive Date: 20130403
  Receipt Date: 20130415
  Transmission Date: 20140414
  Serious: Yes (Hospitalization, Other)
  Sender: FDA-Public Use
  Company Number: ZA-JNJFOC-20130400824

PATIENT
  Sex: Female

DRUGS (2)
  1. XARELTO [Suspect]
     Indication: KNEE ARTHROPLASTY
     Route: 048
  2. XARELTO [Suspect]
     Indication: THROMBOSIS PROPHYLAXIS
     Route: 048

REACTIONS (3)
  - Pulmonary embolism [Unknown]
  - Deep vein thrombosis [Unknown]
  - Increased tendency to bruise [Not Recovered/Not Resolved]
